FAERS Safety Report 12412197 (Version 1)
Quarter: 2016Q2

REPORT INFORMATION
  Report Type: Spontaneous
  Country: FR (occurrence: FR)
  Receive Date: 20160527
  Receipt Date: 20160527
  Transmission Date: 20160815
  Serious: Yes (Hospitalization, Other)
  Sender: FDA-Public Use
  Company Number: FR-JNJFOC-20160523782

PATIENT
  Age: 65 Year
  Sex: Female

DRUGS (1)
  1. RISPERDAL [Suspect]
     Active Substance: RISPERIDONE
     Indication: PRODUCT USED FOR UNKNOWN INDICATION
     Dosage: INITIATED APPROXIMATELY 3 WEEKS AGO
     Route: 048
     Dates: start: 201605

REACTIONS (1)
  - Embolism [Unknown]

NARRATIVE: CASE EVENT DATE: 201605
